FAERS Safety Report 18385444 (Version 1)
Quarter: 2020Q4

REPORT INFORMATION
  Report Type: Report from Study
  Country: None (occurrence: US)
  Receive Date: 20201015
  Receipt Date: 20201015
  Transmission Date: 20210114
  Serious: No
  Sender: FDA-Public Use
  Company Number: US-HORIZON-2020HZN00007

PATIENT
  Age: 69 Year
  Sex: Female
  Weight: 57 kg

DRUGS (10)
  1. CLARITIN 10 MG TABLET [Concomitant]
  2. LISINOPRIL 10 MG TABLET [Concomitant]
     Active Substance: LISINOPRIL
  3. LEVOTHYROXINE SODIUM 88 MCG TABLET [Concomitant]
  4. XIIDRA 5 % DROPPERETTE [Concomitant]
  5. SOMA 350 MG TABLET [Concomitant]
  6. TEPEZZA [Suspect]
     Active Substance: TEPROTUMUMAB-TRBW
     Indication: TOXIC GOITRE
  7. LIPITOR 20 MG TABLET [Concomitant]
  8. DEXILANT 60 MG CAP DR BP [Concomitant]
  9. CYMBALTA 60 MG CAPSULE DR [Concomitant]
  10. MESTINON 180 MG TABLET ER [Concomitant]

REACTIONS (3)
  - Headache [Unknown]
  - Blood pressure increased [Unknown]
  - Anxiety [Unknown]
